FAERS Safety Report 17450509 (Version 1)
Quarter: 2020Q1

REPORT INFORMATION
  Report Type: Spontaneous
  Country: US (occurrence: US)
  Receive Date: 20200221
  Receipt Date: 20200221
  Transmission Date: 20200409
  Serious: Yes (Hospitalization, Disabling, Other)
  Sender: FDA-Public Use
  Company Number: None

PATIENT
  Age: 20 Year
  Sex: Male
  Weight: 67.5 kg

DRUGS (1)
  1. CITALOPRAM 20 MG TABLET [Suspect]
     Active Substance: CITALOPRAM HYDROCHLORIDE
     Indication: DEPRESSION

REACTIONS (11)
  - Amnesia [None]
  - Depression [None]
  - Asthenia [None]
  - Loss of personal independence in daily activities [None]
  - Hypersomnia [None]
  - Seizure [None]
  - Confusional state [None]
  - Memory impairment [None]
  - Apathy [None]
  - Suicidal ideation [None]
  - Brain injury [None]

NARRATIVE: CASE EVENT DATE: 20190713
